FAERS Safety Report 7541628-X (Version None)
Quarter: 2011Q2

REPORT INFORMATION
  Report Type: 
  Country: None (occurrence: None)
  Receive Date: 20110613
  Receipt Date: 20110601
  Transmission Date: 20111010
  Serious: Yes (Hospitalization)
  Sender: FDA-Public Use
  Company Number: CA-JNJFOC-20110602168

PATIENT
  Sex: Male

DRUGS (1)
  1. SIMPONI [Suspect]
     Indication: RHEUMATOID ARTHRITIS
     Route: 058
     Dates: start: 20100401

REACTIONS (4)
  - KNEE ARTHROPLASTY [None]
  - SHOULDER ARTHROPLASTY [None]
  - JOINT ARTHROPLASTY [None]
  - HIP ARTHROPLASTY [None]
